FAERS Safety Report 25248728 (Version 1)
Quarter: 2025Q2

REPORT INFORMATION
  Report Type: Spontaneous
  Country: AU (occurrence: AU)
  Receive Date: 20250429
  Receipt Date: 20250429
  Transmission Date: 20250717
  Serious: Yes (Other)
  Sender: TAKEDA
  Company Number: AU-TAKEDA-2025TUS040570

PATIENT
  Age: 32 Year
  Sex: Female

DRUGS (1)
  1. VYVANSE [Suspect]
     Active Substance: LISDEXAMFETAMINE DIMESYLATE
     Indication: Attention deficit hyperactivity disorder
     Dates: start: 20250306, end: 20250312

REACTIONS (11)
  - Akathisia [Recovering/Resolving]
  - Anxiety [Recovering/Resolving]
  - Arrhythmia [Recovering/Resolving]
  - Depression [Recovering/Resolving]
  - Feeling jittery [Recovering/Resolving]
  - Migraine [Recovered/Resolved]
  - Paralysis [Recovering/Resolving]
  - Psychotic disorder [Recovering/Resolving]
  - Suicidal ideation [Unknown]
  - Tachycardia [Recovering/Resolving]
  - Tremor [Recovering/Resolving]

NARRATIVE: CASE EVENT DATE: 20250306
